FAERS Safety Report 7701970-6 (Version None)
Quarter: 2011Q3

REPORT INFORMATION
  Report Type: 
  Country: None (occurrence: None)
  Receive Date: 20110822
  Receipt Date: 20110811
  Transmission Date: 20111222
  Serious: Yes (Hospitalization, Other)
  Sender: FDA-Public Use
  Company Number: PHHY2011JP63671

PATIENT
  Age: 75 Year
  Sex: Female

DRUGS (5)
  1. CHEMOTHERAPEUTICS [Concomitant]
  2. XELODA [Concomitant]
     Indication: BREAST CANCER
  3. ZOMETA [Suspect]
     Indication: METASTASES TO BONE
     Dosage: 4 MG, UNK
     Route: 041
     Dates: start: 20090401, end: 20110704
  4. HORMONES [Concomitant]
  5. CYCLOPHOSPHAMIDE [Concomitant]
     Indication: BREAST CANCER

REACTIONS (1)
  - PELVIC FRACTURE [None]
